FAERS Safety Report 9542197 (Version 2)
Quarter: 2013Q4

REPORT INFORMATION
  Report Type: Spontaneous
  Country: GB (occurrence: None)
  Receive Date: 20130918
  Receipt Date: 20131203
  Transmission Date: 20140711
  Serious: Yes (Other)
  Sender: FDA-Public Use
  Company Number: AUR-APL-2013-07565

PATIENT
  Age: 77 Year
  Sex: Female

DRUGS (5)
  1. CLOPIDOGREL [Suspect]
     Indication: PROPHYLAXIS
     Route: 048
     Dates: start: 2012, end: 20130819
  2. FENOFIBRATE (FENOFIBRATE) (FENOFIBRATE) [Concomitant]
  3. PERINDOPRIL (PERINDOPRIL) [Concomitant]
  4. RISPERIDONE (RISPERIDONE) [Concomitant]
  5. SIMVASTATIN (SIMVASTATIN) [Concomitant]

REACTIONS (10)
  - Anaemia [None]
  - Haemoglobin decreased [None]
  - Contusion [None]
  - Contusion [None]
  - Contusion [None]
  - Nutritional condition abnormal [None]
  - Abnormal behaviour [None]
  - Hypophagia [None]
  - Fluid intake reduced [None]
  - Platelet disorder [None]
